FAERS Safety Report 9238124 (Version 1)
Quarter: 2013Q2

REPORT INFORMATION
  Report Type: Report from Study
  Country: US (occurrence: US)
  Receive Date: 20130418
  Receipt Date: 20130418
  Transmission Date: 20140414
  Serious: Yes (Other)
  Sender: FDA-Public Use
  Company Number: PHEH2013US008477

PATIENT
  Sex: Male

DRUGS (1)
  1. TASIGNA [Suspect]
     Dosage: 300 MG, BID

REACTIONS (4)
  - Hepatic steatosis [Unknown]
  - Hepatomegaly [Unknown]
  - Nausea [Unknown]
  - Abdominal discomfort [Unknown]
